FAERS Safety Report 25477075 (Version 2)
Quarter: 2025Q3

REPORT INFORMATION
  Report Type: Spontaneous
  Country: CA (occurrence: CA)
  Receive Date: 20250625
  Receipt Date: 20250909
  Transmission Date: 20251020
  Serious: Yes (Other)
  Sender: STALLERGENES
  Company Number: CA-STALCOR-2025-AER-02166

PATIENT
  Age: 17 Year
  Sex: Male

DRUGS (14)
  1. BIRCH [Suspect]
     Active Substance: BETULA NIGRA POLLEN
     Indication: Rhinitis allergic
     Route: 058
     Dates: start: 20240808
  2. BIRCH [Suspect]
     Active Substance: BETULA NIGRA POLLEN
     Route: 058
     Dates: start: 2021
  3. ALNUS SERRULATA POLLEN [Suspect]
     Active Substance: ALNUS SERRULATA POLLEN
     Indication: Rhinitis allergic
     Route: 058
     Dates: start: 20240808
  4. ALNUS SERRULATA POLLEN [Suspect]
     Active Substance: ALNUS SERRULATA POLLEN
     Route: 058
     Dates: start: 2021
  5. AGROSTIS GIGANTEA POLLEN\DACTYLIS GLOMERATA POLLEN\PHLEUM PRATENSE POL [Suspect]
     Active Substance: AGROSTIS GIGANTEA POLLEN\DACTYLIS GLOMERATA POLLEN\PHLEUM PRATENSE POLLEN\POA PRATENSIS POLLEN
     Indication: Rhinitis allergic
     Route: 058
     Dates: start: 20240808
  6. AGROSTIS GIGANTEA POLLEN\DACTYLIS GLOMERATA POLLEN\PHLEUM PRATENSE POL [Suspect]
     Active Substance: AGROSTIS GIGANTEA POLLEN\DACTYLIS GLOMERATA POLLEN\PHLEUM PRATENSE POLLEN\POA PRATENSIS POLLEN
     Route: 058
     Dates: start: 2021
  7. CAT HAIR, STANDARDIZED [Suspect]
     Active Substance: FELIS CATUS HAIR
     Indication: Rhinitis allergic
     Route: 058
     Dates: start: 20240808
  8. CAT HAIR, STANDARDIZED [Suspect]
     Active Substance: FELIS CATUS HAIR
     Route: 058
     Dates: start: 2021
  9. DERMATOPHAGOIDES PTERONYSSINUS [Suspect]
     Active Substance: DERMATOPHAGOIDES PTERONYSSINUS
     Indication: Rhinitis allergic
     Route: 058
     Dates: start: 20240808
  10. DERMATOPHAGOIDES PTERONYSSINUS [Suspect]
     Active Substance: DERMATOPHAGOIDES PTERONYSSINUS
     Route: 058
     Dates: start: 2021
  11. DOG EPITHELIA [Suspect]
     Active Substance: CANIS LUPUS FAMILIARIS SKIN
     Indication: Rhinitis allergic
     Route: 058
     Dates: start: 20240808
  12. DOG EPITHELIA [Suspect]
     Active Substance: CANIS LUPUS FAMILIARIS SKIN
     Route: 058
     Dates: start: 2021
  13. STERILE DILUENT FOR ALLERGENIC EXTRACT (PHENOL) [Suspect]
     Active Substance: PHENOL
     Indication: Rhinitis allergic
     Route: 058
     Dates: start: 20240808
  14. STERILE DILUENT FOR ALLERGENIC EXTRACT (PHENOL) [Suspect]
     Active Substance: PHENOL
     Route: 058
     Dates: start: 2021

REACTIONS (2)
  - Food allergy [Unknown]
  - Urticaria [Unknown]

NARRATIVE: CASE EVENT DATE: 20241015
